FAERS Safety Report 24137482 (Version 2)
Quarter: 2024Q3

REPORT INFORMATION
  Report Type: Report from Study
  Country: EG (occurrence: None)
  Receive Date: 20240725
  Receipt Date: 20240813
  Transmission Date: 20241016
  Serious: Yes (Other)
  Sender: ASTRAZENECA
  Company Number: 2024A165107

PATIENT
  Age: 25032 Day
  Sex: Female

DRUGS (1)
  1. LYNPARZA [Suspect]
     Active Substance: OLAPARIB
     Indication: Ovarian cancer
     Route: 048
     Dates: start: 20231118

REACTIONS (4)
  - Immunodeficiency [Recovered/Resolved]
  - Hypertension [Recovered/Resolved]
  - Hypothyroidism [Unknown]
  - Anaemia [Unknown]

NARRATIVE: CASE EVENT DATE: 20240713
